FAERS Safety Report 20790134 (Version 1)
Quarter: 2022Q2

REPORT INFORMATION
  Report Type: Report from Study
  Country: US (occurrence: US)
  Receive Date: 20220505
  Receipt Date: 20220505
  Transmission Date: 20220721
  Serious: Yes (Death, Hospitalization)
  Sender: FDA-Public Use
  Company Number: US-AMRYT PHARMACEUTICALS DAC-AEGR005842

PATIENT
  Age: 80 Year
  Sex: Female

DRUGS (2)
  1. OCTREOTIDE [Suspect]
     Active Substance: OCTREOTIDE
     Indication: Acromegaly
     Dosage: 40 MILLIGRAM
     Route: 048
     Dates: start: 20210818
  2. OCTREOTIDE [Suspect]
     Active Substance: OCTREOTIDE
     Dosage: 80 MILLIGRAM
     Route: 048
     Dates: start: 20210203

REACTIONS (2)
  - Death [Fatal]
  - Respiratory disorder [Unknown]

NARRATIVE: CASE EVENT DATE: 20220401
